FAERS Safety Report 16993942 (Version 1)
Quarter: 2019Q4

REPORT INFORMATION
  Report Type: Spontaneous
  Country: JP (occurrence: JP)
  Receive Date: 20191105
  Receipt Date: 20191105
  Transmission Date: 20200122
  Serious: Yes (Hospitalization)
  Sender: FDA-Public Use
  Company Number: NVSJ2019JP001923

PATIENT
  Age: 61 Year
  Sex: Female
  Weight: 52.4 kg

DRUGS (3)
  1. CLARITHROMYCIN. [Concomitant]
     Active Substance: CLARITHROMYCIN
     Indication: ATYPICAL MYCOBACTERIUM TEST POSITIVE
     Dosage: UNK
     Route: 048
  2. ETHAMBUTOL [Concomitant]
     Active Substance: ETHAMBUTOL HYDROCHLORIDE
     Indication: ATYPICAL MYCOBACTERIUM TEST POSITIVE
     Dosage: UNK
     Route: 065
  3. RIFAMPICIN CAPSULES [Suspect]
     Active Substance: RIFAMPIN
     Indication: ATYPICAL MYCOBACTERIUM TEST POSITIVE
     Dosage: UNK
     Route: 048

REACTIONS (7)
  - Concomitant disease progression [Recovering/Resolving]
  - Chest pain [Recovering/Resolving]
  - Pneumothorax [Recovering/Resolving]
  - Dyspnoea [Recovering/Resolving]
  - Pyrexia [Recovering/Resolving]
  - Atypical mycobacterial infection [Recovering/Resolving]
  - Arthralgia [Recovering/Resolving]
